FAERS Safety Report 13810716 (Version 2)
Quarter: 2018Q1

REPORT INFORMATION
  Report Type: Spontaneous
  Country: US (occurrence: US)
  Receive Date: 20170728
  Receipt Date: 20180124
  Transmission Date: 20180508
  Serious: No
  Sender: FDA-Public Use
  Company Number: US-AMGEN-USASP2017090363

PATIENT
  Sex: Female

DRUGS (10)
  1. ZITHROMAX [Concomitant]
     Active Substance: AZITHROMYCIN DIHYDRATE
     Dosage: TAB, Z-PAK
  2. CODEINE [Concomitant]
     Active Substance: CODEINE
     Dosage: SOL, 10-100/5
  3. ESTRADIOL. [Concomitant]
     Active Substance: ESTRADIOL
     Dosage: TAB, 0.5 MG, UNK
  4. REPATHA [Suspect]
     Active Substance: EVOLOCUMAB
     Indication: PRODUCT USED FOR UNKNOWN INDICATION
     Dosage: UNK
     Route: 065
  5. PANTOPRAZOLE [Concomitant]
     Active Substance: PANTOPRAZOLE
     Dosage: TAB, 40 MG
  6. GLIMEPIRIDE. [Concomitant]
     Active Substance: GLIMEPIRIDE
     Dosage: TAB, 1 MG
  7. LEVOTHYROXIN [Concomitant]
     Active Substance: LEVOTHYROXINE
     Dosage: TAB, 50 MUG
  8. LOSARTAN/HCT [Concomitant]
     Active Substance: HYDROCHLOROTHIAZIDE\LOSARTAN POTASSIUM
     Dosage: TAB, 100-12.5
  9. CARTIA XT [Concomitant]
     Active Substance: DILTIAZEM HYDROCHLORIDE
     Dosage: CAP, 120/24HR
  10. ONDANSETRON [Concomitant]
     Active Substance: ONDANSETRON
     Dosage: TAB, 8 MG

REACTIONS (1)
  - Injection site reaction [Unknown]
